FAERS Safety Report 6793241-X (Version None)
Quarter: 2010Q2

REPORT INFORMATION
  Report Type: 
  Country: None (occurrence: None)
  Receive Date: 20100624
  Receipt Date: 20091013
  Transmission Date: 20101027
  Serious: Yes (Other)
  Sender: FDA-Public Use
  Company Number: US-MYLANLABS-2009S1016444

PATIENT
  Age: 59 Year
  Sex: Male

DRUGS (6)
  1. CLOZAPINE [Suspect]
     Indication: SCHIZOPHRENIA, PARANOID TYPE
     Dates: end: 20090101
  2. CLOZAPINE [Suspect]
     Dates: start: 20090901
  3. DEPAKOTE [Concomitant]
     Route: 048
  4. RISPERDAL [Concomitant]
     Route: 048
  5. LORAZEPAM [Concomitant]
  6. CLONAZEPAM [Concomitant]
     Route: 048

REACTIONS (1)
  - GRANULOCYTOPENIA [None]
